FAERS Safety Report 9322430 (Version 2)
Quarter: 2013Q4

REPORT INFORMATION
  Report Type: Spontaneous
  Country: US (occurrence: US)
  Receive Date: 20130531
  Receipt Date: 20131226
  Transmission Date: 20140711
  Serious: Yes (Hospitalization)
  Sender: FDA-Public Use
  Company Number: US-B.I. PHARMACEUTICALS,INC./RIDGEFIELD-2013-BI-14706BP

PATIENT
  Sex: Male
  Weight: 102.06 kg

DRUGS (13)
  1. PRADAXA [Suspect]
     Indication: ATRIAL FIBRILLATION
     Dosage: 300 MG
     Dates: start: 20120214, end: 20120827
  2. PERCOCET [Concomitant]
     Indication: BACK PAIN
  3. METFORMIN [Concomitant]
     Indication: DIABETES MELLITUS
     Dosage: 1000 MG
  4. PROTONIX [Concomitant]
     Dosage: 40 MG
  5. AMBIEN [Concomitant]
  6. DIOVAN HCT [Concomitant]
     Indication: HYPERTENSION
  7. IRON [Concomitant]
     Dosage: 325 MG
  8. CARDIZEM CD [Concomitant]
     Indication: HYPERTENSION
     Dosage: 240 MG
  9. CARVEDILOL [Concomitant]
     Indication: HYPERTENSION
     Dosage: 50 MG
  10. TIKOSYN [Concomitant]
  11. ASPIRIN [Concomitant]
     Dosage: 325 MG
  12. STOOL SOFTENER [Concomitant]
     Dosage: 100 MG
  13. LEVITRA [Concomitant]

REACTIONS (2)
  - Cerebellar haemorrhage [Not Recovered/Not Resolved]
  - Gastrointestinal haemorrhage [Unknown]
